FAERS Safety Report 10367649 (Version 9)
Quarter: 2015Q2

REPORT INFORMATION
  Report Type: Report from Study
  Country: AU (occurrence: AU)
  Receive Date: 20140807
  Receipt Date: 20150602
  Transmission Date: 20150821
  Serious: Yes (Hospitalization)
  Sender: FDA-Public Use
  Company Number: AU-ROCHE-1443562

PATIENT
  Age: 92 Year
  Sex: Female
  Weight: 55 kg

DRUGS (16)
  1. VITAMIN B COMPLEX [Concomitant]
     Active Substance: CYANOCOBALAMIN\DEXPANTHENOL\NIACINAMIDE\PYRIDOXINE HYDROCHLORIDE\RIBOFLAVIN 5^-PHOSPHATE SODIUM\THIAMINE HYDROCHLORIDE\VITAMIN B COMPLEX
     Indication: MUSCLE SPASMS
     Route: 065
     Dates: start: 20131016
  2. VASOCARDOL [Concomitant]
     Indication: HYPERTENSION
     Route: 065
     Dates: start: 201310
  3. KEFLEX [Concomitant]
     Active Substance: CEPHALEXIN
     Indication: CELLULITIS
     Route: 065
     Dates: start: 20140305, end: 20140402
  4. NORFLOXACIN [Concomitant]
     Active Substance: NORFLOXACIN
     Indication: URINARY TRACT INFECTION
     Route: 065
     Dates: start: 20140714
  5. NORDIP [Concomitant]
     Indication: HYPERTENSION
     Route: 065
     Dates: end: 20140106
  6. VISMODEGIB [Suspect]
     Active Substance: VISMODEGIB
     Indication: BASAL CELL CARCINOMA
     Route: 048
     Dates: start: 20130530
  7. PARIET [Concomitant]
     Active Substance: RABEPRAZOLE SODIUM
     Indication: GASTROOESOPHAGEAL REFLUX DISEASE
     Route: 065
  8. NOTEN [Concomitant]
     Active Substance: ATENOLOL
     Indication: HYPERTENSION
     Route: 065
     Dates: end: 20131114
  9. ASPIRIN. [Concomitant]
     Active Substance: ASPIRIN
     Indication: CEREBROVASCULAR ACCIDENT
     Route: 065
  10. ADVANTAN OINTMENT [Concomitant]
     Indication: ECZEMA
     Route: 065
     Dates: start: 20130821, end: 20140528
  11. NORDITROPIN [Concomitant]
     Active Substance: SOMATROPIN
     Indication: GROWTH HORMONE DEFICIENCY
  12. NORDITROPIN [Concomitant]
     Active Substance: SOMATROPIN
     Indication: HORMONE LEVEL ABNORMAL
     Route: 065
     Dates: end: 20140106
  13. PANADOL (AUSTRALIA) [Concomitant]
     Indication: ARTHRITIS
     Route: 065
     Dates: start: 20130918, end: 20131114
  14. SOLOSITE [Concomitant]
     Indication: SKIN ULCER
     Route: 065
     Dates: start: 20130918
  15. DIGOXIN. [Concomitant]
     Active Substance: DIGOXIN
     Indication: CEREBROVASCULAR ACCIDENT
     Route: 065
     Dates: end: 20131114
  16. PREDNISONE. [Concomitant]
     Active Substance: PREDNISONE
     Indication: ECZEMA
     Route: 065
     Dates: start: 20130821, end: 20130828

REACTIONS (1)
  - Fall [Unknown]

NARRATIVE: CASE EVENT DATE: 20140714
